FAERS Safety Report 16595964 (Version 1)
Quarter: 2019Q3

REPORT INFORMATION
  Report Type: Report from Study
  Country: None (occurrence: JP)
  Receive Date: 20190719
  Receipt Date: 20190719
  Transmission Date: 20191004
  Serious: Yes (Hospitalization)
  Sender: FDA-Public Use
  Company Number: JP-ABBVIE-19S-087-2777490-00

PATIENT
  Age: 75 Year
  Sex: Female

DRUGS (1)
  1. DUODOPA [Suspect]
     Active Substance: CARBIDOPA\LEVODOPA
     Indication: PARKINSON^S DISEASE
     Route: 050
     Dates: start: 20190417

REACTIONS (11)
  - Crying [Unknown]
  - Fatigue [Unknown]
  - Stoma site discharge [Unknown]
  - Abdominal pain [Unknown]
  - Pain in extremity [Unknown]
  - Dysphoria [Unknown]
  - Drug ineffective [Unknown]
  - Dyskinesia [Unknown]
  - Stoma site extravasation [Unknown]
  - Myalgia [Unknown]
  - Back pain [Unknown]

NARRATIVE: CASE EVENT DATE: 2019
